FAERS Safety Report 14354340 (Version 2)
Quarter: 2018Q1

REPORT INFORMATION
  Report Type: Report from Study
  Country: FR (occurrence: FR)
  Receive Date: 20180105
  Receipt Date: 20180213
  Transmission Date: 20180509
  Serious: Yes (Hospitalization, Other)
  Sender: FDA-Public Use
  Company Number: FR-ASTRAZENECA-2018SE00220

PATIENT
  Age: 874 Month
  Sex: Male

DRUGS (35)
  1. ETOPOSIDE. [Suspect]
     Active Substance: ETOPOSIDE
     Indication: SMALL CELL LUNG CANCER
     Route: 065
     Dates: start: 20171017, end: 20171017
  2. ETOPOSIDE. [Suspect]
     Active Substance: ETOPOSIDE
     Indication: SMALL CELL LUNG CANCER
     Route: 065
     Dates: start: 20171107, end: 20171107
  3. NEBIVOLOL. [Concomitant]
     Active Substance: NEBIVOLOL
     Indication: HYPERTENSION
     Route: 048
     Dates: start: 20170330
  4. DURVALUMAB. [Suspect]
     Active Substance: DURVALUMAB
     Indication: SMALL CELL LUNG CANCER
     Route: 042
     Dates: start: 20171016, end: 20171016
  5. DURVALUMAB. [Suspect]
     Active Substance: DURVALUMAB
     Indication: SMALL CELL LUNG CANCER
     Route: 042
     Dates: start: 20171127, end: 20171127
  6. ETOPOSIDE. [Suspect]
     Active Substance: ETOPOSIDE
     Indication: SMALL CELL LUNG CANCER
     Route: 065
     Dates: start: 20171018, end: 20171018
  7. NAFTIDROFURYL [Concomitant]
     Active Substance: NAFRONYL
     Indication: ARTERITIS
     Route: 048
     Dates: start: 200701
  8. IMODIUM [Concomitant]
     Active Substance: LOPERAMIDE HYDROCHLORIDE
     Indication: DIARRHOEA
     Dosage: 2.0MG AS REQUIRED
     Route: 048
  9. SIMETHICONE (DIMETHICONE) [Concomitant]
     Active Substance: DIMETHICONE
     Indication: DYSPEPSIA
     Dosage: 125.0MG AS REQUIRED
     Route: 048
  10. PHLOROGLUCINOL [Concomitant]
     Active Substance: PHLOROGLUCINOL
     Indication: DYSPEPSIA
     Dosage: 80.0MG AS REQUIRED
     Route: 048
  11. ETOPOSIDE. [Suspect]
     Active Substance: ETOPOSIDE
     Indication: SMALL CELL LUNG CANCER
     Route: 065
     Dates: start: 20171127, end: 20171127
  12. OMEPRAZOLE. [Concomitant]
     Active Substance: OMEPRAZOLE
     Indication: GASTROOESOPHAGEAL REFLUX PROPHYLAXIS
     Route: 048
     Dates: start: 200701
  13. MAGNESIUM B6 VITAMIN [Concomitant]
     Indication: HYPOMAGNESAEMIA
     Route: 048
     Dates: start: 20171208
  14. DURVALUMAB. [Suspect]
     Active Substance: DURVALUMAB
     Indication: SMALL CELL LUNG CANCER
     Route: 042
     Dates: start: 20171218, end: 20171218
  15. ETOPOSIDE. [Suspect]
     Active Substance: ETOPOSIDE
     Indication: SMALL CELL LUNG CANCER
     Route: 065
     Dates: start: 20171128, end: 20171128
  16. ETOPOSIDE. [Suspect]
     Active Substance: ETOPOSIDE
     Indication: SMALL CELL LUNG CANCER
     Route: 065
     Dates: start: 20171219, end: 20171219
  17. CARBOPLATIN. [Suspect]
     Active Substance: CARBOPLATIN
     Indication: SMALL CELL LUNG CANCER
     Dosage: 5  AUC
     Route: 065
     Dates: start: 20171218, end: 20171218
  18. DURVALUMAB. [Suspect]
     Active Substance: DURVALUMAB
     Indication: SMALL CELL LUNG CANCER
     Route: 042
     Dates: start: 20171106, end: 20171106
  19. ETOPOSIDE. [Suspect]
     Active Substance: ETOPOSIDE
     Indication: SMALL CELL LUNG CANCER
     Route: 065
     Dates: start: 20171016, end: 20171016
  20. ATACAND [Concomitant]
     Active Substance: CANDESARTAN CILEXETIL
     Indication: HYPERTENSION
     Route: 048
     Dates: start: 200701
  21. PENTOXIFYLLINE. [Concomitant]
     Active Substance: PENTOXIFYLLINE
     Indication: ARTERITIS
     Route: 048
     Dates: start: 200701
  22. ETOPOSIDE. [Suspect]
     Active Substance: ETOPOSIDE
     Indication: SMALL CELL LUNG CANCER
     Route: 065
     Dates: start: 20171108, end: 20171108
  23. ETOPOSIDE. [Suspect]
     Active Substance: ETOPOSIDE
     Indication: SMALL CELL LUNG CANCER
     Route: 065
     Dates: start: 20171129, end: 20171129
  24. ETOPOSIDE. [Suspect]
     Active Substance: ETOPOSIDE
     Indication: SMALL CELL LUNG CANCER
     Route: 065
     Dates: start: 20171220, end: 20171220
  25. CARBOPLATIN. [Suspect]
     Active Substance: CARBOPLATIN
     Indication: SMALL CELL LUNG CANCER
     Dosage: 314.47  AUC
     Route: 065
     Dates: start: 20171127, end: 20171127
  26. HYDROCHLOROTHIAZIDE. [Concomitant]
     Active Substance: HYDROCHLOROTHIAZIDE
     Indication: HYPERTENSION
     Route: 048
     Dates: start: 20170330
  27. LEXOMIL [Concomitant]
     Active Substance: BROMAZEPAM
     Indication: INSOMNIA
     Route: 048
     Dates: start: 200701
  28. ETOPOSIDE. [Suspect]
     Active Substance: ETOPOSIDE
     Indication: SMALL CELL LUNG CANCER
     Route: 065
     Dates: start: 20171106, end: 20171106
  29. ETOPOSIDE. [Suspect]
     Active Substance: ETOPOSIDE
     Indication: SMALL CELL LUNG CANCER
     Route: 065
     Dates: start: 20171218, end: 20171218
  30. CARBOPLATIN. [Suspect]
     Active Substance: CARBOPLATIN
     Indication: SMALL CELL LUNG CANCER
     Dosage: 384.46 AUC
     Route: 065
     Dates: start: 20171016, end: 20171016
  31. CARBOPLATIN. [Suspect]
     Active Substance: CARBOPLATIN
     Indication: SMALL CELL LUNG CANCER
     Dosage: 391.67 AUC
     Route: 065
     Dates: start: 20171106, end: 20171106
  32. ZYLORIC [Concomitant]
     Active Substance: ALLOPURINOL
     Indication: HYPERURICAEMIA
     Route: 048
     Dates: start: 200901
  33. AVODART [Concomitant]
     Active Substance: DUTASTERIDE
     Indication: URINARY RETENTION
     Route: 048
     Dates: start: 201501
  34. LIPTRUZET [Concomitant]
     Active Substance: ATORVASTATIN CALCIUM\EZETIMIBE
     Indication: HYPERCHOLESTEROLAEMIA
     Route: 048
     Dates: start: 20170330
  35. SMECTA [Concomitant]
     Active Substance: MONTMORILLONITE
     Indication: DIARRHOEA
     Dosage: 3.0G AS REQUIRED
     Route: 048

REACTIONS (1)
  - Pancytopenia [Recovered/Resolved]

NARRATIVE: CASE EVENT DATE: 20171218
